FAERS Safety Report 7866138-1 (Version None)
Quarter: 2011Q4

REPORT INFORMATION
  Report Type: 
  Country: None (occurrence: None)
  Receive Date: 20111028
  Receipt Date: 20110422
  Transmission Date: 20120403
  Serious: No
  Sender: FDA-Public Use
  Company Number: US-GLAXOSMITHKLINE-A0924987A

PATIENT
  Sex: Male

DRUGS (3)
  1. PULMICORT [Suspect]
     Indication: BRONCHIECTASIS
     Route: 065
  2. ADVAIR DISKUS 100/50 [Suspect]
     Indication: BRONCHIECTASIS
     Route: 055
  3. QVAR 40 [Suspect]
     Indication: BRONCHIECTASIS
     Route: 065

REACTIONS (2)
  - DRUG INEFFECTIVE [None]
  - COUGH [None]
